FAERS Safety Report 4520692-6 (Version None)
Quarter: 2004Q4

REPORT INFORMATION
  Report Type: 
  Country: None (occurrence: None)
  Receive Date: 20041207
  Receipt Date: 20040930
  Transmission Date: 20050328
  Serious: Yes (Other)
  Sender: FDA-Public Use
  Company Number: JP-MERCK-0410USA00518

PATIENT
  Age: 65 Year
  Sex: Male

DRUGS (6)
  1. TIMOPTIC [Suspect]
     Indication: OPEN ANGLE GLAUCOMA
     Route: 047
     Dates: start: 19950101, end: 20030312
  2. TIMOPTIC [Suspect]
     Route: 047
     Dates: start: 20030401, end: 20030501
  3. TRUSOPT [Concomitant]
     Indication: GLAUCOMA
     Route: 047
     Dates: start: 20020101, end: 20030312
  4. XALATAN [Suspect]
     Indication: GLAUCOMA
     Route: 047
     Dates: start: 20020101, end: 20030312
  5. DETANTOL [Suspect]
     Indication: GLAUCOMA
     Route: 047
     Dates: start: 20020101, end: 20030312
  6. ACETAZOLAMIDE [Suspect]
     Route: 048
     Dates: start: 20020101, end: 20030312

REACTIONS (3)
  - CHOROIDAL DETACHMENT [None]
  - MACULOPATHY [None]
  - UVEITIS [None]
